FAERS Safety Report 20847690 (Version 1)
Quarter: 2022Q2

REPORT INFORMATION
  Report Type: Spontaneous
  Country: DE (occurrence: DE)
  Receive Date: 20220519
  Receipt Date: 20220519
  Transmission Date: 20220721
  Serious: Yes (Other)
  Sender: FDA-Public Use
  Company Number: None

PATIENT
  Age: 62 Year
  Sex: Male
  Weight: 70 kg

DRUGS (2)
  1. DEXTROSE [Suspect]
     Active Substance: DEXTROSE
     Indication: Neoplasm malignant
     Route: 042
     Dates: start: 20220412
  2. OXALIPLATIN [Suspect]
     Active Substance: OXALIPLATIN
     Indication: Neoplasm malignant
     Dosage: 242 MG
     Route: 042
     Dates: start: 20220412

REACTIONS (6)
  - Speech disorder [Unknown]
  - Syncope [Unknown]
  - Oedema mucosal [Unknown]
  - Dyspnoea [Unknown]
  - Muscle rigidity [Unknown]
  - Cardiovascular disorder [Unknown]

NARRATIVE: CASE EVENT DATE: 20220412
